FAERS Safety Report 15004273 (Version 1)
Quarter: 2018Q2

REPORT INFORMATION
  Report Type: Spontaneous
  Country: US (occurrence: US)
  Receive Date: 20180613
  Receipt Date: 20180613
  Transmission Date: 20180711
  Serious: No
  Sender: FDA-Public Use
  Company Number: US-PFIZER INC-2018237169

PATIENT
  Age: 16 Year
  Sex: Female

DRUGS (1)
  1. ADVIL MIGRAINE [Suspect]
     Active Substance: IBUPROFEN
     Dosage: UNK (AT 10 AM)

REACTIONS (3)
  - Vomiting [Unknown]
  - Drug ineffective [Unknown]
  - Abdominal pain upper [Unknown]
